FAERS Safety Report 6260541-1 (Version None)
Quarter: 2009Q3

REPORT INFORMATION
  Report Type: 
  Country: None (occurrence: None)
  Receive Date: 20090708
  Receipt Date: 20090625
  Transmission Date: 20100115
  Serious: Yes (Other)
  Sender: FDA-Public Use
  Company Number: PHHY2009BR25789

PATIENT
  Sex: Female
  Weight: 57 kg

DRUGS (3)
  1. EXFORGE [Suspect]
     Indication: HYPERTENSION
     Dosage: 1 TABLET IN MORNING
     Route: 048
     Dates: start: 20090624
  2. PAMELOR [Concomitant]
     Indication: DEPRESSION
     Dosage: 25 MG, UNK
     Route: 048
  3. NICOPAVERINA [Concomitant]
     Indication: PERIPHERAL VASCULAR DISORDER
     Dosage: 1 CAPSULE/DAY
     Route: 048
     Dates: start: 20030101

REACTIONS (4)
  - BURNING SENSATION [None]
  - GASTROINTESTINAL PAIN [None]
  - PROCTALGIA [None]
  - URINE FLOW DECREASED [None]
